APPROVED DRUG PRODUCT: ROZLYTREK
Active Ingredient: ENTRECTINIB
Strength: 200MG
Dosage Form/Route: CAPSULE;ORAL
Application: N212725 | Product #002
Applicant: GENENTECH INC
Approved: Aug 15, 2019 | RLD: Yes | RS: Yes | Type: RX

PATENTS:
Patent 9616059 | Expires: Jul 8, 2028
Patent 9649306 | Expires: May 22, 2033
Patent 10231965 | Expires: Feb 17, 2035
Patent 9255087 | Expires: Jul 8, 2028
Patent 8673893 | Expires: Jul 8, 2028
Patent 9255087 | Expires: Jul 8, 2028
Patent 9649306 | Expires: May 22, 2033
Patent 10231965 | Expires: Feb 17, 2035
Patent 8673893 | Expires: Jul 8, 2028
Patent 10561651 | Expires: Feb 19, 2035
Patent 10738037 | Expires: May 18, 2037
Patent 11091469 | Expires: May 18, 2037
Patent 11091469 | Expires: May 18, 2037
Patent 9029356 | Expires: Jul 8, 2028
Patent 9085558 | Expires: Jul 8, 2028
Patent 8299057 | Expires: Mar 10, 2032
Patent 9085565 | Expires: May 22, 2033
Patent 10398693 | Expires: Jul 18, 2038
Patent 11253515 | Expires: Jul 18, 2038

EXCLUSIVITY:
Code: NPP | Date: Oct 20, 2026
Code: ODE-265 | Date: Aug 15, 2026
Code: ODE-313 | Date: Aug 15, 2026
Code: ODE-448 | Date: Oct 20, 2030